FAERS Safety Report 8440332-3 (Version None)
Quarter: 2012Q2

REPORT INFORMATION
  Report Type: 
  Country: None (occurrence: None)
  Receive Date: 20120615
  Receipt Date: 20120604
  Transmission Date: 20120825
  Serious: Yes (Other)
  Sender: FDA-Public Use
  Company Number: GB-ACTELION-A-CH2012-67121

PATIENT

DRUGS (2)
  1. TRACLEER [Suspect]
     Indication: PULMONARY ARTERIAL HYPERTENSION
     Dosage: 62.5 MG, BID
     Route: 048
  2. AMIODARONE HCL [Suspect]

REACTIONS (5)
  - DYSPNOEA [None]
  - DRUG INTERACTION [None]
  - HYPERTHYROIDISM [None]
  - PALPITATIONS [None]
  - NAUSEA [None]
